FAERS Safety Report 4936743-0 (Version None)
Quarter: 2006Q1

REPORT INFORMATION
  Report Type: 
  Country: None (occurrence: None)
  Receive Date: 20060302
  Receipt Date: 20060213
  Transmission Date: 20060701
  Serious: Yes (Life-Threatening, Other)
  Sender: FDA-Public Use
  Company Number: JP200601005207

PATIENT
  Age: 46 Year
  Sex: Male
  Weight: 39.2 kg

DRUGS (11)
  1. ZYPREXA [Suspect]
     Indication: SCHIZOTYPAL PERSONALITY DISORDER
     Dosage: SEE IMAGE
     Route: 048
     Dates: start: 20060106, end: 20060109
  2. ZYPREXA [Suspect]
     Indication: SCHIZOTYPAL PERSONALITY DISORDER
     Dosage: SEE IMAGE
     Route: 048
     Dates: start: 20060110, end: 20060116
  3. ROHYPNOL /NET/ (FLUNITRAZEPAM) [Concomitant]
  4. PAXIL [Concomitant]
  5. ALPRAZOLAM [Concomitant]
  6. SCHINLUCK (SODIUM PICOSULFATE) [Concomitant]
  7. SENNOSIDE A+B (SENNOSIDE A+B) [Concomitant]
  8. PL GRAN. (CAFFEINE, PARACETAMOL, PROMETHAZINE METHYLENE DISALICYLATE, [Concomitant]
  9. HIBERNA (PROMETHAZINE HYDROCHLORIDE) [Concomitant]
  10. ZITHROMAX [Concomitant]
  11. VOLTAREN /SCH/ (DICLOFENAC POTASSIUM) [Concomitant]

REACTIONS (3)
  - LYMPHOCYTE STIMULATION TEST POSITIVE [None]
  - PANCYTOPENIA [None]
  - PYREXIA [None]
